FAERS Safety Report 5485038-8 (Version None)
Quarter: 2007Q4

REPORT INFORMATION
  Report Type: 
  Country: None (occurrence: None)
  Receive Date: 20071015
  Receipt Date: 20071005
  Transmission Date: 20080405
  Serious: Yes (Other)
  Sender: FDA-Public Use
  Company Number: PHFR2007IE02707

PATIENT
  Age: 56 Year
  Sex: Male

DRUGS (3)
  1. VALPROATE SODIUM [Concomitant]
     Route: 065
  2. PROCYCLIDINE HYDROCHLORIDE 2MG TAB [Concomitant]
     Route: 065
  3. CLOZARIL [Suspect]
     Indication: SCHIZOPHRENIA
     Route: 048
     Dates: start: 20060316

REACTIONS (6)
  - BLOOD PRESSURE INCREASED [None]
  - DYSPNOEA [None]
  - HEMIPLEGIA [None]
  - LIBIDO DECREASED [None]
  - MUSCULAR WEAKNESS [None]
  - MUSCULOSKELETAL STIFFNESS [None]
